FAERS Safety Report 8208442-3 (Version None)
Quarter: 2012Q1

REPORT INFORMATION
  Report Type: 
  Country: None (occurrence: None)
  Receive Date: 20120314
  Receipt Date: 20120312
  Transmission Date: 20120608
  Serious: Yes (Other)
  Sender: FDA-Public Use
  Company Number: JP-PFIZER INC-2012065123

PATIENT
  Sex: Female

DRUGS (3)
  1. MAGMITT [Concomitant]
     Dosage: UNK
  2. LYRICA [Suspect]
     Dosage: UNK
     Dates: start: 20110101
  3. ALOSENN [Concomitant]
     Dosage: UNK

REACTIONS (2)
  - OLIGURIA [None]
  - RENAL DISORDER [None]
